FAERS Safety Report 8176506-9 (Version None)
Quarter: 2012Q1

REPORT INFORMATION
  Report Type: 
  Country: None (occurrence: None)
  Receive Date: 20120301
  Receipt Date: 20120227
  Transmission Date: 20120608
  Serious: Yes (Death, Hospitalization, Other)
  Sender: FDA-Public Use
  Company Number: CL-PFIZER INC-2012016471

PATIENT
  Age: 43 Year
  Sex: Female

DRUGS (8)
  1. METHOTREXATE [Suspect]
     Indication: CHEMOTHERAPY
     Dosage: UNK MG, UNK
     Route: 042
     Dates: start: 20111229, end: 20111230
  2. VINCRISTINE [Suspect]
     Indication: CHEMOTHERAPY
     Dosage: 2 MG, UNK
     Route: 042
     Dates: start: 20111229
  3. ASPARAGINASE [Suspect]
     Indication: CHEMOTHERAPY
     Dosage: 15000 MG, UNK
     Route: 030
     Dates: start: 20120103
  4. LEVOTHYROXINE SODIUM [Suspect]
     Indication: HYPOTHYROIDISM
     Dosage: 100 UG, 1X/DAY
     Route: 048
     Dates: start: 20110718
  5. IMATINIB MESYLATE [Suspect]
     Indication: CHEMOTHERAPY
     Dosage: 600 MG, 1X/DAY
     Route: 048
     Dates: start: 20111228, end: 20120104
  6. VINCRISTINE [Suspect]
     Dosage: 2 MG, UNK
     Route: 042
     Dates: start: 20120103
  7. CYTARABINE [Suspect]
     Indication: CHEMOTHERAPY
     Dosage: UNK MG, 2X/DAY
     Route: 042
     Dates: start: 20120102
  8. DEXAMETHASONE [Suspect]
     Indication: CHEMOTHERAPY
     Dosage: UNK MG, 1X/DAY
     Route: 042
     Dates: start: 20111229, end: 20120101

REACTIONS (11)
  - ASPERGILLOSIS [None]
  - ABDOMINAL SEPSIS [None]
  - APLASIA [None]
  - DIARRHOEA [None]
  - PYREXIA [None]
  - CHILLS [None]
  - SEPTIC SHOCK [None]
  - FEBRILE NEUTROPENIA [None]
  - THROMBOCYTOPENIA [None]
  - APLASTIC ANAEMIA [None]
  - PANCYTOPENIA [None]
